FAERS Safety Report 25920188 (Version 2)
Quarter: 2025Q4

REPORT INFORMATION
  Report Type: Spontaneous
  Country: EU (occurrence: EU)
  Receive Date: 20251014
  Receipt Date: 20251017
  Transmission Date: 20260117
  Serious: Yes (Other)
  Sender: NOVARTIS
  Company Number: EU-PANPHARMAP-2025017554

PATIENT
  Age: 82 Year
  Sex: Female

DRUGS (4)
  1. IMATINIB [Suspect]
     Active Substance: IMATINIB
     Indication: Chronic myeloid leukaemia
     Dosage: UNK
     Route: 065
     Dates: start: 202406
  2. IRON SUCROSE [Suspect]
     Active Substance: IRON SUCROSE
     Indication: Iron deficiency
     Dosage: UNK
     Route: 042
  3. HYDROXYUREA [Suspect]
     Active Substance: HYDROXYUREA
     Indication: Anaemia
     Dosage: LOW-DOSE
     Route: 065
  4. HYDROXYUREA [Suspect]
     Active Substance: HYDROXYUREA
     Indication: Thrombocytosis

REACTIONS (2)
  - Cytopenia [Unknown]
  - Platelet count abnormal [Unknown]
